FAERS Safety Report 15670254 (Version 2)
Quarter: 2018Q4

REPORT INFORMATION
  Report Type: Spontaneous
  Country: US (occurrence: US)
  Receive Date: 20181129
  Receipt Date: 20181213
  Transmission Date: 20190205
  Serious: No
  Sender: FDA-Public Use
  Company Number: US-SA-2018SA325196

PATIENT
  Age: 59 Year
  Sex: Female

DRUGS (11)
  1. VALPROIC ACID. [Concomitant]
     Active Substance: VALPROIC ACID
  2. TOPROL XL [Concomitant]
     Active Substance: METOPROLOL SUCCINATE
  3. LOSARTAN POTASSIUM. [Concomitant]
     Active Substance: LOSARTAN POTASSIUM
  4. OMEGA-3 FATTY ACIDS [Concomitant]
     Active Substance: OMEGA-3 FATTY ACIDS
  5. FUROSEMIDE. [Concomitant]
     Active Substance: FUROSEMIDE
  6. ALLOPURINOL. [Concomitant]
     Active Substance: ALLOPURINOL
  7. TRAZODONE [Concomitant]
     Active Substance: TRAZODONE HYDROCHLORIDE
  8. LEVOTHYROXINE. [Concomitant]
     Active Substance: LEVOTHYROXINE
  9. PRALUENT [Suspect]
     Active Substance: ALIROCUMAB
     Indication: TYPE IIA HYPERLIPIDAEMIA
     Dosage: 75 MG, QOW
     Route: 058
     Dates: start: 20181111, end: 2018
  10. VASCEPA [Concomitant]
     Active Substance: ICOSAPENT ETHYL
  11. CYCLOBENZAPRINE. [Concomitant]
     Active Substance: CYCLOBENZAPRINE

REACTIONS (4)
  - Chills [Recovered/Resolved]
  - Urticaria [Unknown]
  - Pruritus [Unknown]
  - Pain [Recovered/Resolved]

NARRATIVE: CASE EVENT DATE: 20181118
